FAERS Safety Report 5202854-8 (Version None)
Quarter: 2006Q4

REPORT INFORMATION
  Report Type: 
  Country: None (occurrence: None)
  Receive Date: 20061016
  Receipt Date: 20060804
  Transmission Date: 20070319
  Serious: No
  Sender: FDA-Public Use
  Company Number: 2006SP002913

PATIENT
  Age: 88 Year
  Sex: Male
  Weight: 68.9467 kg

DRUGS (8)
  1. LUNESTA [Suspect]
     Indication: INSOMNIA
     Dosage: 1 MG; HS; ORAL
     Route: 048
     Dates: start: 20060803
  2. DIGOXIN [Concomitant]
  3. ATENOLOL [Concomitant]
  4. PLAVIX [Concomitant]
  5. PRILOSEC [Concomitant]
  6. FUROSEMIDE [Concomitant]
  7. POTASSIUM CHLORIDE [Concomitant]
  8. SIMVASTATIN [Concomitant]

REACTIONS (1)
  - PARADOXICAL DRUG REACTION [None]
